FAERS Safety Report 9788508 (Version 1)
Quarter: 2013Q4

REPORT INFORMATION
  Report Type: Report from Study
  Country: FR (occurrence: FR)
  Receive Date: 20131230
  Receipt Date: 20131230
  Transmission Date: 20140711
  Serious: Yes (Other)
  Sender: FDA-Public Use
  Company Number: PHHY2013FR153035

PATIENT
  Age: 25 Year
  Sex: Female

DRUGS (1)
  1. EXTAVIA [Suspect]
     Indication: MULTIPLE SCLEROSIS
     Dosage: UNK UKN, UNK
     Dates: start: 20100910

REACTIONS (4)
  - Drug specific antibody present [Unknown]
  - Multiple sclerosis relapse [Recovered/Resolved]
  - Sensitisation [Unknown]
  - Bladder disorder [Unknown]
